FAERS Safety Report 9283994 (Version 8)
Quarter: 2020Q3

REPORT INFORMATION
  Report Type: Report from Study
  Country: NL (occurrence: NL)
  Receive Date: 20130510
  Receipt Date: 20131028
  Transmission Date: 20201104
  Serious: Yes (Death, Hospitalization)
  Sender: FDA-Public Use
  Company Number: NL-JNJFOC-20130501814

PATIENT
  Age: 66 Year
  Sex: Female
  Weight: 56.4 kg

DRUGS (9)
  1. ABIRATERONE ACETATE. [Suspect]
     Active Substance: ABIRATERONE ACETATE
     Route: 048
  2. PREDNISONE. [Suspect]
     Active Substance: PREDNISONE
     Indication: BREAST CANCER METASTATIC
     Route: 048
     Dates: start: 20130508, end: 20130514
  3. EXEMESTANE. [Suspect]
     Active Substance: EXEMESTANE
     Indication: BREAST CANCER METASTATIC
     Route: 048
     Dates: start: 20130404, end: 20130517
  4. PREDNISONE. [Suspect]
     Active Substance: PREDNISONE
     Indication: BREAST CANCER METASTATIC
     Route: 048
     Dates: start: 20130529
  5. ABIRATERONE ACETATE. [Suspect]
     Active Substance: ABIRATERONE ACETATE
     Indication: BREAST CANCER METASTATIC
     Route: 048
     Dates: start: 20130404, end: 20130517
  6. HALOPERIDOL. [Concomitant]
     Active Substance: HALOPERIDOL
     Route: 065
  7. PREDNISONE. [Suspect]
     Active Substance: PREDNISONE
     Indication: BREAST CANCER METASTATIC
     Route: 048
     Dates: start: 20130504, end: 20130507
  8. PREDNISONE. [Suspect]
     Active Substance: PREDNISONE
     Indication: BREAST CANCER METASTATIC
     Route: 048
     Dates: start: 20130522, end: 20130528
  9. PREDNISONE. [Suspect]
     Active Substance: PREDNISONE
     Indication: BREAST CANCER METASTATIC
     Route: 048
     Dates: start: 20130515, end: 20130521

REACTIONS (3)
  - Blood bilirubin increased [Fatal]
  - Decreased appetite [Recovered/Resolved with Sequelae]
  - Dyspnoea [Recovered/Resolved with Sequelae]

NARRATIVE: CASE EVENT DATE: 20130502
